FAERS Safety Report 4870130-9 (Version None)
Quarter: 2005Q4

REPORT INFORMATION
  Report Type: 
  Country: None (occurrence: None)
  Receive Date: 20051229
  Receipt Date: 20051229
  Transmission Date: 20060501
  Serious: Yes (Other)
  Sender: FDA-Public Use
  Company Number: None

PATIENT
  Sex: Male

DRUGS (1)
  1. MYSOLINE [Suspect]
     Dosage: 3 TABS BY MOUTH IN THE AM + 5 TABS AT BEDTIME

REACTIONS (1)
  - DRUG INEFFECTIVE [None]
